FAERS Safety Report 9428282 (Version 1)
Quarter: 2013Q3

REPORT INFORMATION
  Report Type: Spontaneous
  Country: US (occurrence: US)
  Receive Date: 20130730
  Receipt Date: 20130730
  Transmission Date: 20140515
  Serious: No
  Sender: FDA-Public Use
  Company Number: US-BAYER-2013-091418

PATIENT
  Sex: Female

DRUGS (2)
  1. ALEVE CAPLET [Suspect]
     Indication: MUSCLE SPASMS
  2. ALEVE CAPLET [Suspect]
     Indication: MUSCLE SPASMS

REACTIONS (1)
  - Off label use [None]
